FAERS Safety Report 8505150-6 (Version None)
Quarter: 2012Q3

REPORT INFORMATION
  Report Type: 
  Country: None (occurrence: None)
  Receive Date: 20120712
  Receipt Date: 20120709
  Transmission Date: 20120928
  Serious: Yes (Hospitalization)
  Sender: FDA-Public Use
  Company Number: NL-AMGEN-NLDCT2012042103

PATIENT
  Age: 60 Year
  Sex: Female
  Weight: 63 kg

DRUGS (17)
  1. CALCI CHEW D3 [Concomitant]
     Dosage: UNK
     Route: 048
     Dates: start: 20120615
  2. CLEMASTINE FUMARATE [Concomitant]
     Dosage: 2 MG, UNK
     Route: 042
     Dates: start: 20120615, end: 20120615
  3. DENOSUMAB [Suspect]
     Indication: BREAST CANCER
     Dosage: 120 MG, UNK
     Route: 058
     Dates: start: 20120615
  4. ENALAPRIL MALEATE [Concomitant]
     Dosage: 5 MG, UNK
     Route: 048
     Dates: start: 20120601
  5. BISOPROLOL FUMARATE [Concomitant]
     Dosage: 2.5 MG, UNK
     Route: 048
     Dates: start: 20120601
  6. FLUTICASONE PROPIONATE/SALMETEROL [Concomitant]
     Dosage: 50 MUG, UNK
     Route: 055
     Dates: start: 20120619
  7. AMITRIPTYLINE HCL [Concomitant]
     Dosage: 10 MG, UNK
     Route: 048
     Dates: start: 20120620
  8. CYCLOPHOSPHAMIDE [Concomitant]
  9. ATROVENT [Concomitant]
     Dosage: 2 ML, UNK
     Route: 055
     Dates: start: 20120617, end: 20120620
  10. ADRENALIN IN OIL INJ [Concomitant]
     Route: 058
     Dates: start: 20120615, end: 20120615
  11. COMBIVENT [Concomitant]
     Dosage: 2 ML, UNK
     Route: 055
     Dates: start: 20120615, end: 20120616
  12. DEXAMETHASONE SODIUM PHOSPHATE [Concomitant]
     Dosage: 20 MG, UNK
     Route: 048
     Dates: start: 20120615, end: 20120615
  13. LASIX [Concomitant]
     Dosage: 40 MG, UNK
     Route: 042
     Dates: start: 20120616, end: 20120617
  14. RANITIDINE [Concomitant]
     Dosage: 50 MG, UNK
     Route: 042
     Dates: start: 20120615, end: 20120615
  15. NADROPARIN [Concomitant]
     Dosage: UNK IU, UNK
     Route: 030
     Dates: start: 20120618, end: 20120619
  16. LIPITOR [Concomitant]
     Dosage: 20 MG, UNK
     Route: 048
     Dates: start: 20120601
  17. PREDNISOLONE [Concomitant]
     Dosage: 5 MG, UNK
     Route: 048
     Dates: start: 20120619

REACTIONS (1)
  - HYPERSENSITIVITY [None]
